FAERS Safety Report 4581920-4 (Version None)
Quarter: 2005Q1

REPORT INFORMATION
  Report Type: 
  Country: None (occurrence: None)
  Receive Date: 20050214
  Receipt Date: 20040405
  Transmission Date: 20050727
  Serious: No
  Sender: FDA-Public Use
  Company Number: US-GLAXOSMITHKLINE-A0506041A

PATIENT
  Age: 46 Year
  Sex: Female

DRUGS (2)
  1. LAMICTAL [Suspect]
     Indication: DRUG USE FOR UNKNOWN INDICATION
     Dosage: 75MG PER DAY
     Route: 048
     Dates: start: 20040210, end: 20040406
  2. CONCERTA [Concomitant]
     Dosage: 27MG PER DAY

REACTIONS (3)
  - HALLUCINATION, VISUAL [None]
  - LYMPHADENOPATHY [None]
  - SWOLLEN TONGUE [None]
